FAERS Safety Report 12348762 (Version 3)
Quarter: 2016Q2

REPORT INFORMATION
  Report Type: Spontaneous
  Country: US (occurrence: US)
  Receive Date: 20160509
  Receipt Date: 20160608
  Transmission Date: 20160815
  Serious: Yes (Other)
  Sender: FDA-Public Use
  Company Number: US-PFIZER INC-2016243717

PATIENT
  Age: 9 Decade
  Sex: Female
  Weight: 70 kg

DRUGS (4)
  1. PRAVACHOL [Concomitant]
     Active Substance: PRAVASTATIN SODIUM
     Indication: LIPIDS ABNORMAL
     Dosage: UNK
  2. AMLODIPINE [Concomitant]
     Active Substance: AMLODIPINE BESYLATE
     Indication: BLOOD PRESSURE ABNORMAL
     Dosage: UNK
  3. HYDROCHLOROTHIAZIDE. [Concomitant]
     Active Substance: HYDROCHLOROTHIAZIDE
     Indication: BLOOD PRESSURE ABNORMAL
     Dosage: UNK (HAS BEEN OFF AND ON THIS PRODUCT)
     Dates: start: 201604
  4. TORISEL [Suspect]
     Active Substance: TEMSIROLIMUS
     Indication: ENDOMETRIAL CANCER STAGE IV
     Dosage: UNK, WEEKLY
     Route: 042
     Dates: start: 20160321, end: 20160425

REACTIONS (19)
  - Blood sodium decreased [Recovering/Resolving]
  - Blood pressure abnormal [Recovering/Resolving]
  - Decreased appetite [Recovering/Resolving]
  - Oral pain [Recovering/Resolving]
  - Fatigue [Recovering/Resolving]
  - Myalgia [Not Recovered/Not Resolved]
  - Dry mouth [Recovering/Resolving]
  - Night sweats [Recovering/Resolving]
  - Blood pressure decreased [Unknown]
  - Pain [Recovered/Resolved]
  - Chills [Recovering/Resolving]
  - Product use issue [Unknown]
  - Constipation [Recovering/Resolving]
  - Blood count abnormal [Not Recovered/Not Resolved]
  - Blood creatinine increased [Recovering/Resolving]
  - Back pain [Not Recovered/Not Resolved]
  - Mobility decreased [Unknown]
  - Feeling cold [Not Recovered/Not Resolved]
  - Blood potassium decreased [Recovering/Resolving]

NARRATIVE: CASE EVENT DATE: 2016
